FAERS Safety Report 11283080 (Version 1)
Quarter: 2015Q3

REPORT INFORMATION
  Report Type: Spontaneous
  Country: US (occurrence: None)
  Receive Date: 20150717
  Receipt Date: 20150717
  Transmission Date: 20151125
  Serious: Yes (Life-Threatening, Hospitalization, Disabling)
  Sender: FDA-Public Use
  Company Number: None

PATIENT
  Age: 43 Year
  Sex: Male
  Weight: 65 kg

DRUGS (1)
  1. INVOKANA [Suspect]
     Active Substance: CANAGLIFLOZIN
     Indication: DIABETES MELLITUS
     Dosage: ONE OUKK
     Route: 048
     Dates: start: 20150624, end: 20150626

REACTIONS (4)
  - Metabolic acidosis [None]
  - Metabolic encephalopathy [None]
  - Ketoacidosis [None]
  - Glycosuria [None]

NARRATIVE: CASE EVENT DATE: 20150626
